FAERS Safety Report 8847930 (Version 4)
Quarter: 2013Q2

REPORT INFORMATION
  Report Type: Spontaneous
  Country: US (occurrence: US)
  Receive Date: 20121018
  Receipt Date: 20130401
  Transmission Date: 20140414
  Serious: Yes (Hospitalization, Disabling, Other)
  Sender: FDA-Public Use
  Company Number: US-009507513-1210USA006570

PATIENT
  Sex: Female

DRUGS (3)
  1. FOSAMAX [Suspect]
     Indication: OSTEOPOROSIS
     Dosage: 70 MG, UNK
     Route: 048
     Dates: start: 20050214, end: 200701
  2. ALENDRONATE SODIUM [Suspect]
     Indication: OSTEOPOROSIS
     Dosage: 70 MG, UNK
     Dates: start: 20081224, end: 201101
  3. CALCIUM (UNSPECIFIED) [Concomitant]
     Indication: OSTEOPOROSIS
     Dosage: 600 MG, BID

REACTIONS (13)
  - Femur fracture [Recovered/Resolved]
  - Open reduction of fracture [Unknown]
  - Skeletal injury [Not Recovered/Not Resolved]
  - Fall [Unknown]
  - Ankle fracture [Recovered/Resolved]
  - Fluid retention [Unknown]
  - Bursitis [Unknown]
  - Arthritis [Unknown]
  - Scoliosis [Unknown]
  - Migraine [Unknown]
  - Hyperlipidaemia [Unknown]
  - Bunion operation [Unknown]
  - Blood cholesterol increased [Unknown]
